FAERS Safety Report 24634535 (Version 1)
Quarter: 2024Q4

REPORT INFORMATION
  Report Type: Spontaneous
  Country: CN (occurrence: CN)
  Receive Date: 20241119
  Receipt Date: 20241119
  Transmission Date: 20250115
  Serious: Yes (Other)
  Sender: Haleon PLC
  Company Number: CN-HALEON-2209156

PATIENT
  Age: 34 Year
  Sex: Male

DRUGS (2)
  1. DICLOFENAC SODIUM [Suspect]
     Active Substance: DICLOFENAC SODIUM
     Indication: Analgesic therapy
     Dosage: TIME INTERVAL: 0.33333333 DAYS: 25MG 3 TIMES A DAY
     Route: 048
     Dates: start: 20241029, end: 20241103
  2. PAPAVERINE HYDROCHLORIDE [Suspect]
     Active Substance: PAPAVERINE HYDROCHLORIDE
     Indication: Analgesic therapy
     Dosage: TIME INTERVAL: 0.33333333 DAYS
     Route: 048
     Dates: start: 20241029, end: 20241103

REACTIONS (6)
  - Drug eruption [Recovering/Resolving]
  - Condition aggravated [Recovering/Resolving]
  - Skin plaque [Recovering/Resolving]
  - Rash erythematous [Recovering/Resolving]
  - Erythema [Recovering/Resolving]
  - Pruritus [Recovering/Resolving]

NARRATIVE: CASE EVENT DATE: 20241104
